FAERS Safety Report 8514577-8 (Version None)
Quarter: 2012Q3

REPORT INFORMATION
  Report Type: 
  Country: None (occurrence: None)
  Receive Date: 20120717
  Receipt Date: 20120705
  Transmission Date: 20120928
  Serious: No
  Sender: FDA-Public Use
  Company Number: US-ASTRAZENECA-2011SE61394

PATIENT
  Age: 62 Year
  Sex: Female

DRUGS (3)
  1. SEROQUEL [Suspect]
     Indication: SLEEP DISORDER
     Route: 048
  2. SEROQUEL [Suspect]
     Indication: THINKING ABNORMAL
     Route: 048
  3. TYLENOL W/ CODEINE NO. 4 [Suspect]
     Route: 065

REACTIONS (8)
  - BRADYPHRENIA [None]
  - OFF LABEL USE [None]
  - SINUS DISORDER [None]
  - PAIN [None]
  - MULTIPLE ALLERGIES [None]
  - MALAISE [None]
  - FEELING ABNORMAL [None]
  - STRESS [None]
